FAERS Safety Report 5722745-3 (Version None)
Quarter: 2008Q2

REPORT INFORMATION
  Report Type: 
  Country: None (occurrence: None)
  Receive Date: 20080425
  Receipt Date: 20080416
  Transmission Date: 20081010
  Serious: Yes (Other)
  Sender: FDA-Public Use
  Company Number: JPI-P-003064

PATIENT
  Age: 49 Year
  Sex: Female
  Weight: 92.9874 kg

DRUGS (15)
  1. XYREM [Suspect]
     Indication: CHRONIC FATIGUE SYNDROME
     Dosage: SEE IMAGE
     Route: 048
     Dates: start: 20080125, end: 20080326
  2. XYREM [Suspect]
     Indication: INSOMNIA
     Dosage: SEE IMAGE
     Route: 048
     Dates: start: 20080125, end: 20080326
  3. CLONAZEPAM [Suspect]
     Indication: CONVULSION
     Dosage: 3 MG, ORAL
     Route: 048
     Dates: start: 20060101
  4. VALPROATE SEMISODIUM (VALPROATE SEMISODIUM) (TABLETS) [Suspect]
     Indication: CONVULSION
     Dosage: 1000 MG, ORAL
     Route: 048
     Dates: start: 20060101
  5. PRAMIPEXOLE DIHYDROCHLORIDE [Concomitant]
  6. SOMATROPIN (SOMATROPIN) (INJECTION) [Concomitant]
  7. PROGESTERONE [Concomitant]
  8. ESTRADIOL [Concomitant]
  9. TESTOSTERONE [Concomitant]
  10. CHOLESTYRAMINE (COLESTYRAMINE) [Concomitant]
  11. LACTATED RINGER'S (RINGER-LACTATE /01126391/) [Concomitant]
  12. GLUTATHIONE (GLUTATHIONE) [Concomitant]
  13. LEUCOVORIN (LEUCOVORIN /01631601/) [Concomitant]
  14. IRON (IRON) [Concomitant]
  15. CYANOCOBALAMIN (CYCANOCOBALAMIN) (INJECTION) [Concomitant]

REACTIONS (15)
  - AMNESIA [None]
  - CHRONIC FATIGUE SYNDROME [None]
  - CONVULSION [None]
  - DEPRESSION [None]
  - DIZZINESS [None]
  - FEELING ABNORMAL [None]
  - HEADACHE [None]
  - ILL-DEFINED DISORDER [None]
  - INITIAL INSOMNIA [None]
  - MIDDLE INSOMNIA [None]
  - MUSCLE TWITCHING [None]
  - NASOPHARYNGITIS [None]
  - SINUSITIS [None]
  - SOCIAL AVOIDANT BEHAVIOUR [None]
  - SOMNOLENCE [None]
